FAERS Safety Report 5286761-0 (Version None)
Quarter: 2007Q2

REPORT INFORMATION
  Report Type: 
  Country: None (occurrence: None)
  Receive Date: 20070404
  Receipt Date: 20070330
  Transmission Date: 20071010
  Serious: Yes (Hospitalization, Other)
  Sender: FDA-Public Use
  Company Number: 2006UW06093

PATIENT
  Age: 11623 Day
  Sex: Male
  Weight: 90.9 kg

DRUGS (3)
  1. SEROQUEL [Suspect]
     Indication: SCHIZOPHRENIA
     Route: 048
     Dates: start: 20010401, end: 20051220
  2. GEODON [Concomitant]
     Dates: start: 20051201
  3. RISPERDAL [Concomitant]
     Dates: start: 20000401, end: 20020401

REACTIONS (2)
  - PANCREATITIS [None]
  - SKIN LACERATION [None]
